FAERS Safety Report 6396151-5 (Version None)
Quarter: 2009Q4

REPORT INFORMATION
  Report Type: 
  Country: None (occurrence: None)
  Receive Date: 20091009
  Receipt Date: 20090928
  Transmission Date: 20100525
  Serious: Yes (Hospitalization)
  Sender: FDA-Public Use
  Company Number: SE-GENENTECH-291522

PATIENT

DRUGS (4)
  1. BEVACIZUMAB [Suspect]
     Indication: COLORECTAL CANCER METASTATIC
     Dosage: 7.5 MG/KG, Q3W
     Dates: start: 20081203
  2. ERLOTINIB [Suspect]
     Indication: COLORECTAL CANCER METASTATIC
     Dosage: 150 MG, UNK
     Dates: start: 20081203
  3. CAPECITABINE [Concomitant]
     Indication: COLORECTAL CANCER METASTATIC
     Dosage: UNK
     Dates: start: 20081204
  4. OXALIPLATIN [Concomitant]
     Indication: COLORECTAL CANCER METASTATIC
     Dosage: UNK
     Dates: start: 20081204

REACTIONS (1)
  - GENERAL PHYSICAL HEALTH DETERIORATION [None]
